FAERS Safety Report 5981203-1 (Version None)
Quarter: 2008Q4

REPORT INFORMATION
  Report Type: 
  Country: None (occurrence: None)
  Receive Date: 20081205
  Receipt Date: 20081128
  Transmission Date: 20090506
  Serious: Yes (Other)
  Sender: FDA-Public Use
  Company Number: B0548293A

PATIENT
  Age: 39 Year
  Sex: Male
  Weight: 50 kg

DRUGS (9)
  1. KIVEXA [Suspect]
     Indication: HIV INFECTION
     Route: 048
     Dates: start: 20081105, end: 20081110
  2. KALETRA [Suspect]
  3. INFLUENZA VIRUS VACCINE INACTIVATED [Concomitant]
  4. FOLIC ACID [Concomitant]
  5. ERGOCALCIFEROL [Concomitant]
  6. KALETRA [Concomitant]
  7. DAPSONE [Concomitant]
  8. THIAMINE HCL [Concomitant]
  9. VITAMIN B1 TAB [Concomitant]

REACTIONS (7)
  - ASTHENIA [None]
  - EYE IRRITATION [None]
  - HYPERSENSITIVITY [None]
  - INFLUENZA LIKE ILLNESS [None]
  - MYALGIA [None]
  - NAUSEA [None]
  - PYREXIA [None]
